FAERS Safety Report 6311926-6 (Version None)
Quarter: 2009Q3

REPORT INFORMATION
  Report Type: 
  Country: None (occurrence: None)
  Receive Date: 20090817
  Receipt Date: 20080708
  Transmission Date: 20100115
  Serious: Yes (Other)
  Sender: FDA-Public Use
  Company Number: US-BRISTOL-MYERS SQUIBB COMPANY-14253959

PATIENT
  Sex: Female

DRUGS (4)
  1. ESTRACE [Suspect]
     Dosage: ALSO TAKEN DURING MARCH1997.
     Dates: start: 19900601
  2. PREMARIN [Suspect]
     Dates: start: 19900601
  3. PROVERA [Suspect]
     Dates: start: 19900601
  4. PREMPRO [Suspect]
     Dates: start: 19970301, end: 20010601

REACTIONS (1)
  - BREAST CANCER [None]
